FAERS Safety Report 6832326-6 (Version None)
Quarter: 2010Q3

REPORT INFORMATION
  Report Type: 
  Country: None (occurrence: None)
  Receive Date: 20100707
  Receipt Date: 20100622
  Transmission Date: 20110219
  Serious: Yes (Hospitalization)
  Sender: FDA-Public Use
  Company Number: 2010002639

PATIENT
  Age: 60 Year
  Sex: Female

DRUGS (6)
  1. ERLOTINIB (ERLOTINIB) (TABLET) (ERLOTINIB) [Suspect]
     Indication: NON-SMALL CELL LUNG CANCER
     Dosage: ORAL
     Route: 048
     Dates: start: 20070713
  2. GLYBURIDE [Concomitant]
  3. ALTACE [Concomitant]
  4. METHIMAZOLE [Concomitant]
  5. LOPERAMIDE HYDROCHLORIDE [Concomitant]
  6. SALBUTAMOL (SALBUTAMOL) [Concomitant]

REACTIONS (2)
  - DYSPHAGIA [None]
  - HAEMOPTYSIS [None]
